FAERS Safety Report 12879931 (Version 1)
Quarter: 2016Q4

REPORT INFORMATION
  Report Type: Spontaneous
  Country: US (occurrence: US)
  Receive Date: 20161025
  Receipt Date: 20161025
  Transmission Date: 20170207
  Serious: No
  Sender: FDA-Public Use
  Company Number: US-PFIZER INC-2016490244

PATIENT
  Sex: Female

DRUGS (11)
  1. FLAGYL [Suspect]
     Active Substance: METRONIDAZOLE\METRONIDAZOLE HYDROCHLORIDE
     Dosage: UNK
  2. NORVASC [Suspect]
     Active Substance: AMLODIPINE BESYLATE
     Dosage: UNK
  3. ALTACE [Suspect]
     Active Substance: RAMIPRIL
     Dosage: UNK
  4. SILVER SULFADIAZENE [Suspect]
     Active Substance: SILVER SULFADIAZINE
     Dosage: UNK
  5. IODINE. [Suspect]
     Active Substance: IODINE
     Dosage: UNK
     Route: 061
  6. SULFAMETHOXAZOLE/TRIMETHOPRIM [Suspect]
     Active Substance: SULFAMETHOXAZOLE\TRIMETHOPRIM
     Dosage: UNK
  7. IODINE. [Suspect]
     Active Substance: IODINE
     Dosage: UNK
     Route: 042
  8. ZOCOR [Suspect]
     Active Substance: SIMVASTATIN
     Dosage: UNK
  9. WELLBUTRIN [Suspect]
     Active Substance: BUPROPION HYDROCHLORIDE
     Dosage: UNK
  10. CODEINE [Suspect]
     Active Substance: CODEINE
     Dosage: UNK
  11. HYDROCHLOROTHIAZIDE. [Suspect]
     Active Substance: HYDROCHLOROTHIAZIDE
     Dosage: UNK

REACTIONS (1)
  - Drug hypersensitivity [Not Recovered/Not Resolved]
